FAERS Safety Report 4272662-3 (Version None)
Quarter: 2004Q1

REPORT INFORMATION
  Report Type: 
  Country: None (occurrence: None)
  Receive Date: 20040115
  Receipt Date: 20040115
  Transmission Date: 20041129
  Serious: Yes (Other)
  Sender: FDA-Public Use
  Company Number: None

PATIENT

DRUGS (6)
  1. PREDNISONE ACETATE 1% GENERIC [Suspect]
     Indication: CORNEAL GRAFT REJECTION
     Dosage: QID OD
     Route: 047
     Dates: start: 20030820
  2. PREDNISONE ACETATE 1% GENERIC [Suspect]
     Indication: UVEITIS
     Dosage: QID OD
     Route: 047
     Dates: start: 20030820
  3. PREDNISONE ACETATE 1% GENERIC [Suspect]
     Indication: CORNEAL GRAFT REJECTION
     Dosage: QID OD
     Route: 047
     Dates: start: 20030917
  4. PREDNISONE ACETATE 1% GENERIC [Suspect]
     Indication: UVEITIS
     Dosage: QID OD
     Route: 047
     Dates: start: 20030917
  5. COSOPT [Concomitant]
  6. XALATAN [Concomitant]

REACTIONS (2)
  - PHARMACEUTICAL PRODUCT COMPLAINT [None]
  - VISION BLURRED [None]
